FAERS Safety Report 5825525-3 (Version None)
Quarter: 2008Q3

REPORT INFORMATION
  Report Type: 
  Country: None (occurrence: None)
  Receive Date: 20080729
  Receipt Date: 20080723
  Transmission Date: 20090109
  Serious: Yes (Other)
  Sender: FDA-Public Use
  Company Number: US-AMGEN-US178081

PATIENT
  Sex: Male
  Weight: 62.6 kg

DRUGS (14)
  1. ARANESP [Suspect]
     Indication: RENAL FAILURE CHRONIC
     Route: 058
     Dates: start: 20040806
  2. IMURAN [Suspect]
     Route: 048
     Dates: start: 19890101
  3. CYCLOSPORINE [Concomitant]
     Route: 048
     Dates: start: 19890101
  4. LIPITOR [Concomitant]
     Route: 048
  5. PREDNISONE [Concomitant]
     Route: 048
     Dates: start: 19890101
  6. NOVOLIN N [Concomitant]
     Route: 058
  7. AVANDIA [Concomitant]
     Route: 048
  8. FERROUS SULFATE TAB [Concomitant]
     Route: 048
  9. FOLIC ACID [Concomitant]
     Route: 048
  10. HUMULIN R [Concomitant]
     Route: 058
  11. VITAMIN B6 [Concomitant]
     Route: 048
  12. VITAMIN B-12 [Concomitant]
     Route: 048
  13. ATACAND [Concomitant]
     Route: 048
  14. ALLOPURINOL [Concomitant]
     Route: 048

REACTIONS (5)
  - ANTI-ERYTHROPOIETIN ANTIBODY POSITIVE [None]
  - GOUT [None]
  - LEUKOPENIA [None]
  - NON-NEUTRALISING ANTIBODIES POSITIVE [None]
  - PANCYTOPENIA [None]
